FAERS Safety Report 23630956 (Version 2)
Quarter: 2024Q1

REPORT INFORMATION
  Report Type: Spontaneous
  Country: JP (occurrence: JP)
  Receive Date: 20240314
  Receipt Date: 20240329
  Transmission Date: 20240410
  Serious: Yes (Hospitalization)
  Sender: FDA-Public Use
  Company Number: JP-IQVIA-JT2024JP000085

PATIENT
  Age: 63 Year
  Sex: Female
  Weight: 63.4 kg

DRUGS (19)
  1. FERRIC CITRATE ANHYDROUS [Suspect]
     Active Substance: FERRIC CITRATE ANHYDROUS
     Indication: Iron deficiency anaemia
     Dosage: 250 MILLIGRAM, BID
     Route: 048
  2. ENARODUSTAT [Suspect]
     Active Substance: ENARODUSTAT
     Indication: Nephrogenic anaemia
     Dosage: 2 MILLIGRAM, QD
     Route: 048
     Dates: start: 20230224, end: 20230316
  3. ENARODUSTAT [Suspect]
     Active Substance: ENARODUSTAT
     Dosage: 4 MILLIGRAM, QD
     Route: 048
     Dates: start: 20230317, end: 20230427
  4. ENARODUSTAT [Suspect]
     Active Substance: ENARODUSTAT
     Dosage: 6 MILLIGRAM, QD
     Route: 048
     Dates: start: 20230428, end: 20231214
  5. ENARODUSTAT [Suspect]
     Active Substance: ENARODUSTAT
     Dosage: 6 MILLIGRAM, QD
     Route: 048
     Dates: start: 20231229
  6. NEXIUM [Suspect]
     Active Substance: ESOMEPRAZOLE MAGNESIUM
     Indication: Gastrooesophageal reflux disease
     Dosage: 20 MILLIGRAM, QD
     Route: 048
     Dates: end: 20231130
  7. FUROSEMIDE [Concomitant]
     Active Substance: FUROSEMIDE
     Indication: Essential hypertension
     Dosage: 20 MILLIGRAM, QD
     Route: 048
  8. FUROSEMIDE [Concomitant]
     Active Substance: FUROSEMIDE
     Indication: Cardiac failure chronic
  9. ATORVASTATIN CALCIUM TRIHYDRATE [Concomitant]
     Active Substance: ATORVASTATIN CALCIUM TRIHYDRATE
     Indication: Hyperlipidaemia
     Dosage: 10 MILLIGRAM, QD
     Route: 048
     Dates: end: 20231228
  10. ATORVASTATIN CALCIUM TRIHYDRATE [Concomitant]
     Active Substance: ATORVASTATIN CALCIUM TRIHYDRATE
     Dosage: 5 MILLIGRAM, QD
     Route: 048
     Dates: start: 20231229
  11. ZETIA [Concomitant]
     Active Substance: EZETIMIBE
     Indication: Hyperlipidaemia
     Dosage: 10 MILLIGRAM, QD
     Route: 048
     Dates: end: 20231218
  12. LEVOTHYROXINE SODIUM [Concomitant]
     Active Substance: LEVOTHYROXINE SODIUM
     Indication: Hypothyroidism
     Dosage: 50 MICROGRAM, QD
     Route: 048
  13. FEBUXOSTAT [Concomitant]
     Active Substance: FEBUXOSTAT
     Indication: Hyperuricaemia
     Dosage: 10 MILLIGRAM, QD
     Route: 048
  14. EDOXABAN TOSYLATE [Concomitant]
     Active Substance: EDOXABAN TOSYLATE
     Indication: Atrial fibrillation
     Dosage: 60 MILLIGRAM, QD
     Route: 048
  15. ESAXERENONE [Concomitant]
     Active Substance: ESAXERENONE
     Indication: Essential hypertension
     Dosage: 2.5 MILLIGRAM, BID
     Route: 048
  16. TENELIGLIPTIN [Concomitant]
     Active Substance: TENELIGLIPTIN
     Indication: Diabetes mellitus
     Dosage: 20 MILLIGRAM, QD
     Route: 048
  17. CILOSTAZOL [Concomitant]
     Active Substance: CILOSTAZOL
     Indication: Peripheral arterial occlusive disease
     Dosage: 50 MILLIGRAM, BID
     Route: 048
  18. ENTRESTO [Concomitant]
     Active Substance: SACUBITRIL\VALSARTAN
     Indication: Cardiac failure chronic
     Dosage: 100 MILLIGRAM, BID
     Route: 048
     Dates: end: 20230601
  19. ENTRESTO [Concomitant]
     Active Substance: SACUBITRIL\VALSARTAN
     Dosage: 50 MILLIGRAM, BID
     Route: 048
     Dates: start: 20230602

REACTIONS (1)
  - Gastric polyps [Recovering/Resolving]

NARRATIVE: CASE EVENT DATE: 20231122
